FAERS Safety Report 20702295 (Version 1)
Quarter: 2022Q2

REPORT INFORMATION
  Report Type: Spontaneous
  Country: US (occurrence: US)
  Receive Date: 20220412
  Receipt Date: 20220412
  Transmission Date: 20220721
  Serious: No
  Sender: FDA-Public Use
  Company Number: US-PFIZER INC-2021882436

PATIENT
  Age: 74 Year
  Sex: Female

DRUGS (1)
  1. CHANTIX [Suspect]
     Active Substance: VARENICLINE TARTRATE
     Indication: Smoking cessation therapy
     Dosage: UNK

REACTIONS (6)
  - Nausea [Unknown]
  - Dizziness [Unknown]
  - Somnolence [Unknown]
  - Feeling abnormal [Unknown]
  - Asthenia [Unknown]
  - Product prescribing error [Unknown]
